FAERS Safety Report 16362437 (Version 1)
Quarter: 2019Q3

REPORT INFORMATION
  Report Type: Spontaneous
  Country: US (occurrence: US)
  Receive Date: 20190526
  Receipt Date: 20190526
  Transmission Date: 20191004
  Serious: Yes (Life-Threatening, Hospitalization)
  Sender: FDA-Public Use
  Company Number: None

PATIENT
  Age: 49 Year
  Sex: Male
  Weight: 131.4 kg

DRUGS (4)
  1. LISINOPRIL. [Concomitant]
     Active Substance: LISINOPRIL
  2. RED YEAST RICE [Concomitant]
     Active Substance: DIETARY SUPPLEMENT
  3. LANTUS [Concomitant]
     Active Substance: INSULIN GLARGINE
  4. TRESIBA [Suspect]
     Active Substance: INSULIN DEGLUDEC

REACTIONS (3)
  - Escherichia test positive [None]
  - Streptococcus test positive [None]
  - Gangrene [None]

NARRATIVE: CASE EVENT DATE: 20181024
